FAERS Safety Report 7536094-4 (Version None)
Quarter: 2011Q2

REPORT INFORMATION
  Report Type: 
  Country: None (occurrence: None)
  Receive Date: 20110602
  Receipt Date: 20110520
  Transmission Date: 20111010
  Serious: Yes (Other)
  Sender: FDA-Public Use
  Company Number: 872886

PATIENT
  Age: 63 Year
  Sex: Female

DRUGS (4)
  1. (CENTYL) [Concomitant]
  2. QUESTRAN [Concomitant]
  3. SIMVASTATIN [Concomitant]
  4. OXALIPLATIN [Suspect]
     Indication: COLON CANCER
     Dosage: 210 MG MILLIGRAM(S), INTRAVENOUS
     Route: 042
     Dates: start: 20110317, end: 20110317

REACTIONS (4)
  - METASTASES TO CENTRAL NERVOUS SYSTEM [None]
  - DRUG INEFFECTIVE [None]
  - CYANOSIS [None]
  - ANAPHYLACTIC REACTION [None]
